FAERS Safety Report 8450378-7 (Version None)
Quarter: 2012Q2

REPORT INFORMATION
  Report Type: 
  Country: None (occurrence: None)
  Receive Date: 20120620
  Receipt Date: 20120615
  Transmission Date: 20120825
  Serious: Yes (Other)
  Sender: FDA-Public Use
  Company Number: US-PFIZER INC-2012145040

PATIENT
  Sex: Female
  Weight: 63.492 kg

DRUGS (1)
  1. LYRICA [Suspect]
     Indication: PAIN
     Dosage: UNK
     Dates: start: 20120501

REACTIONS (6)
  - AGITATION [None]
  - HALLUCINATION [None]
  - ILLUSION [None]
  - MOOD ALTERED [None]
  - DELIRIUM [None]
  - HOSTILITY [None]
